FAERS Safety Report 24757484 (Version 1)
Quarter: 2024Q4

REPORT INFORMATION
  Report Type: Spontaneous
  Country: CN (occurrence: CN)
  Receive Date: 20241220
  Receipt Date: 20241220
  Transmission Date: 20250115
  Serious: Yes (Hospitalization)
  Sender: STRIDES
  Company Number: CN-STRIDES ARCOLAB LIMITED-2024SP016782

PATIENT
  Age: 67 Year
  Sex: Male

DRUGS (2)
  1. COLCHICINE [Suspect]
     Active Substance: COLCHICINE
     Indication: Gout
     Dosage: 0.5 MILLIGRAM, BID
     Route: 065
     Dates: end: 202405
  2. COLCHICINE [Suspect]
     Active Substance: COLCHICINE
     Dosage: UNK, (RESUMED)
     Route: 065
     Dates: start: 202405

REACTIONS (2)
  - Carbohydrate antigen 72-4 increased [Unknown]
  - False positive investigation result [Unknown]
